FAERS Safety Report 23685079 (Version 3)
Quarter: 2024Q2

REPORT INFORMATION
  Report Type: Spontaneous
  Country: CO (occurrence: CO)
  Receive Date: 20240329
  Receipt Date: 20240612
  Transmission Date: 20240716
  Serious: Yes (Hospitalization)
  Sender: FDA-Public Use
  Company Number: CO-GLAXOSMITHKLINE-CO2023AMR180872

PATIENT

DRUGS (2)
  1. BENLYSTA [Suspect]
     Active Substance: BELIMUMAB
     Indication: Systemic lupus erythematosus
     Dosage: 600 MG
     Dates: start: 20210311, end: 20231127
  2. BENLYSTA [Suspect]
     Active Substance: BELIMUMAB
     Dosage: 480 MG, MO
     Dates: start: 20231127

REACTIONS (9)
  - Fall [Not Recovered/Not Resolved]
  - Ankle fracture [Recovering/Resolving]
  - Laboratory test abnormal [Not Recovered/Not Resolved]
  - Helicobacter infection [Unknown]
  - Pain [Not Recovered/Not Resolved]
  - Muscle spasms [Not Recovered/Not Resolved]
  - Skin burning sensation [Not Recovered/Not Resolved]
  - Hypoaesthesia [Not Recovered/Not Resolved]
  - White blood cell count decreased [Not Recovered/Not Resolved]

NARRATIVE: CASE EVENT DATE: 20231211
